FAERS Safety Report 25971395 (Version 2)
Quarter: 2025Q4

REPORT INFORMATION
  Report Type: Report from Study
  Country: CL (occurrence: CL)
  Receive Date: 20251028
  Receipt Date: 20251030
  Transmission Date: 20260117
  Serious: Yes (Other)
  Sender: JOHNSON AND JOHNSON
  Company Number: CL-JNJFOC-20251028858

PATIENT
  Age: 51 Year
  Sex: Female

DRUGS (1)
  1. SIMPONI [Suspect]
     Active Substance: GOLIMUMAB
     Indication: Psoriatic arthropathy
     Route: 058
     Dates: start: 20250820

REACTIONS (5)
  - Psoriatic arthropathy [Recovering/Resolving]
  - Oral candidiasis [Not Recovered/Not Resolved]
  - Rash [Not Recovered/Not Resolved]
  - Gastrooesophageal reflux disease [Unknown]
  - Thoracic outlet syndrome [Unknown]

NARRATIVE: CASE EVENT DATE: 20250101
